FAERS Safety Report 9295258 (Version 1)
Quarter: 2013Q1

REPORT INFORMATION
  Report Type: Spontaneous
  Country: US (occurrence: None)
  Receive Date: 20121227
  Receipt Date: 20121227
  Transmission Date: 20140127
  Serious: Yes (Other)
  Sender: FDA-Public Use
  Company Number: PHEH2011US009682

PATIENT
  Age: 23 Year
  Sex: Female

DRUGS (6)
  1. EXJADE [Suspect]
  2. PENICILLIN (BENZYLPENICILLIN SODIUM) [Concomitant]
  3. MULTIVITAMINS (CALCIUM PANTOTHENATE,FOLIC ACID, VITAMINS NOS) [Concomitant]
  4. MAGNESIUM (MAGNESIUM) [Concomitant]
  5. ZINC (ZINC) [Concomitant]
  6. CALCIUM (CALCIUM) [Concomitant]

REACTIONS (2)
  - Inflammation [None]
  - Hepatic enzyme increased [None]
